FAERS Safety Report 20068395 (Version 1)
Quarter: 2021Q4

REPORT INFORMATION
  Report Type: Spontaneous
  Country: US (occurrence: None)
  Receive Date: 20211112
  Receipt Date: 20211112
  Transmission Date: 20220303
  Serious: Yes (Other)
  Sender: FDA-Public Use
  Company Number: None

PATIENT
  Sex: Female

DRUGS (1)
  1. RITUXAN [Suspect]
     Active Substance: RITUXIMAB
     Indication: Sjogren^s syndrome
     Dosage: OTHER FREQUENCY : WK,0,2, 16;?
     Route: 017
     Dates: start: 20180221

REACTIONS (2)
  - Spinal operation [None]
  - Therapy interrupted [None]
